FAERS Safety Report 6715162-0 (Version None)
Quarter: 2010Q2

REPORT INFORMATION
  Report Type: 
  Country: None (occurrence: None)
  Receive Date: 20100507
  Receipt Date: 20100504
  Transmission Date: 20101027
  Serious: Yes (Death, Hospitalization)
  Sender: FDA-Public Use
  Company Number: GB-BAYER-201022705GPV

PATIENT
  Age: 63 Year
  Sex: Female

DRUGS (8)
  1. SORAFENIB [Suspect]
     Indication: METASTATIC RENAL CELL CARCINOMA
     Dosage: TOTAL DAILY DOSE: 400 MG
     Dates: start: 20100309, end: 20100324
  2. FRAGMIN [Suspect]
     Indication: ANTICOAGULANT THERAPY
     Route: 058
     Dates: start: 20081208, end: 20100325
  3. METOCLOPRAMIDE HYDROCHLORIDE [Concomitant]
     Indication: ANTIEMETIC SUPPORTIVE CARE
     Dosage: TOTAL DAILY DOSE: 60 MG
     Dates: start: 20081101
  4. LEVOTHYROXINE SODIUM [Concomitant]
     Indication: HYPOTHYROIDISM
     Dates: start: 20090101
  5. CYCLIZINE [Concomitant]
     Indication: ANTIEMETIC SUPPORTIVE CARE
     Dosage: TOTAL DAILY DOSE: 150 MG
  6. TRAZODONE HYDROCHLORIDE [Concomitant]
     Indication: ANXIETY
     Dosage: TOTAL DAILY DOSE: 50 MG
     Dates: start: 20080401
  7. TEMAZEPAM [Concomitant]
     Indication: DEPRESSION
     Dosage: TOTAL DAILY DOSE: 10 MG
     Dates: start: 20080401
  8. TAZOCIN [Concomitant]

REACTIONS (2)
  - CIRCULATORY COLLAPSE [None]
  - RETROPERITONEAL HAEMORRHAGE [None]
